FAERS Safety Report 5200052-5 (Version None)
Quarter: 2007Q1

REPORT INFORMATION
  Report Type: 
  Country: None (occurrence: None)
  Receive Date: 20070105
  Receipt Date: 20061226
  Transmission Date: 20070707
  Serious: Yes (Other)
  Sender: FDA-Public Use
  Company Number: JP-ELI_LILLY_AND_COMPANY-JP200612003512

PATIENT
  Age: 75 Year
  Sex: Female

DRUGS (4)
  1. GEMZAR [Suspect]
     Indication: NON-SMALL CELL LUNG CANCER
     Dosage: UNK, UNK
     Route: 042
     Dates: end: 20061201
  2. VINORELBINE TARTRATE [Concomitant]
     Indication: NON-SMALL CELL LUNG CANCER
     Dates: end: 20061201
  3. GRANISETRON  HCL [Concomitant]
     Route: 065
  4. DEXAMETHASONE SODIUM PHOSPHATE [Concomitant]
     Route: 065

REACTIONS (4)
  - HEMIPLEGIA [None]
  - MALIGNANT NEOPLASM PROGRESSION [None]
  - METASTASES TO CENTRAL NERVOUS SYSTEM [None]
  - PH URINE INCREASED [None]
